FAERS Safety Report 7190947-8 (Version None)
Quarter: 2010Q4

REPORT INFORMATION
  Report Type: 
  Country: None (occurrence: None)
  Receive Date: 20101223
  Receipt Date: 20100807
  Transmission Date: 20110411
  Serious: No
  Sender: FDA-Public Use
  Company Number: US-AMGEN-TCS429901

PATIENT

DRUGS (1)
  1. ENBREL [Suspect]
     Indication: PSORIASIS
     Dosage: 50 MG, 2 TIMES/WK
     Route: 058
     Dates: start: 20080401, end: 20100101

REACTIONS (5)
  - BRONCHITIS [None]
  - PSORIASIS [None]
  - SKIN FISSURES [None]
  - SKIN HAEMORRHAGE [None]
  - UPPER RESPIRATORY TRACT INFECTION [None]
